FAERS Safety Report 20063124 (Version 12)
Quarter: 2024Q3

REPORT INFORMATION
  Report Type: Report from Study
  Country: CA (occurrence: CA)
  Receive Date: 20211112
  Receipt Date: 20240808
  Transmission Date: 20241016
  Serious: Yes (Other)
  Sender: JOHNSON AND JOHNSON
  Company Number: CA-JNJFOC-20210602895

PATIENT
  Age: 25 Year
  Sex: Female
  Weight: 74.8 kg

DRUGS (14)
  1. REMICADE [Suspect]
     Active Substance: INFLIXIMAB
     Indication: Crohn^s disease
     Dosage: THERAPY START DATE ALSO REPORTED ON 17-DEC-2020 AND 20-JAN-2022
     Route: 041
     Dates: start: 20110804
  2. REMICADE [Suspect]
     Active Substance: INFLIXIMAB
     Dosage: THERAPY START DATE ALSO REPORTED ON 17-DEC-2020 AND 20-JAN-2022?EXPIRY DATE: FEB-2025, 01-MAR-2026
     Route: 041
     Dates: start: 20110804
  3. REMICADE [Suspect]
     Active Substance: INFLIXIMAB
     Route: 041
     Dates: start: 20110804
  4. TOZINAMERAN [Concomitant]
     Active Substance: TOZINAMERAN
     Indication: COVID-19 prophylaxis
     Dosage: PFIZER
     Route: 065
     Dates: start: 20210517, end: 20210517
  5. TOZINAMERAN [Concomitant]
     Active Substance: TOZINAMERAN
     Route: 065
     Dates: start: 20210710
  6. TYLENOL WITH CODEINE [Concomitant]
     Active Substance: ACETAMINOPHEN\CODEINE PHOSPHATE
     Indication: Premedication
     Route: 048
     Dates: start: 20210416
  7. CETROTIDE [Concomitant]
     Active Substance: CETRORELIX ACETATE
     Indication: Premedication
     Route: 065
     Dates: start: 20210427, end: 20210501
  8. VERSED [Concomitant]
     Active Substance: MIDAZOLAM HYDROCHLORIDE
     Indication: Premedication
     Route: 065
     Dates: start: 20210503
  9. FENTANYL [Concomitant]
     Active Substance: FENTANYL\FENTANYL CITRATE
     Indication: Premedication
     Dates: start: 20210503
  10. ANCEF [Concomitant]
     Active Substance: CEFAZOLIN SODIUM
     Indication: Prophylaxis
     Dates: start: 20210503
  11. VITAMIN B12 [Concomitant]
     Active Substance: CYANOCOBALAMIN
     Indication: Product used for unknown indication
     Dosage: DAILY
     Route: 065
  12. ERGOCALCIFEROL [Concomitant]
     Active Substance: ERGOCALCIFEROL
     Indication: Product used for unknown indication
     Dosage: DAILY
     Route: 065
  13. ASPIRIN [Concomitant]
     Active Substance: ASPIRIN
     Indication: Product used for unknown indication
     Dosage: DAILY
     Route: 065
  14. FOLIC ACID [Concomitant]
     Active Substance: FOLIC ACID
     Indication: Product used for unknown indication
     Route: 048

REACTIONS (11)
  - Abdominal mass [Unknown]
  - Intestinal resection [Unknown]
  - In vitro fertilisation [Not Recovered/Not Resolved]
  - Abdominal operation [Unknown]
  - Abortion spontaneous [Unknown]
  - Exposure during pregnancy [Recovered/Resolved]
  - COVID-19 [Recovered/Resolved]
  - Scar [Unknown]
  - Inflammation [Not Recovered/Not Resolved]
  - Off label use [Unknown]
  - Incorrect dose administered [Unknown]

NARRATIVE: CASE EVENT DATE: 20110801
